FAERS Safety Report 6443438-3 (Version None)
Quarter: 2009Q4

REPORT INFORMATION
  Report Type: 
  Country: None (occurrence: None)
  Receive Date: 20091117
  Receipt Date: 20091106
  Transmission Date: 20100525
  Serious: Yes (Hospitalization)
  Sender: FDA-Public Use
  Company Number: FR-PFIZER INC-2009294011

PATIENT
  Age: 57 Year
  Sex: Female

DRUGS (5)
  1. ARACYTINE [Suspect]
     Indication: ACUTE MYELOID LEUKAEMIA
     Dosage: UNK
     Route: 042
     Dates: start: 20090126, end: 20090509
  2. VFEND [Suspect]
     Indication: BRONCHOPULMONARY ASPERGILLOSIS
     Dosage: UNK
     Route: 048
     Dates: start: 20090303, end: 20090320
  3. CERUBIDIN [Suspect]
     Indication: ACUTE MYELOID LEUKAEMIA
     Dosage: UNK
     Route: 042
     Dates: start: 20090126, end: 20090509
  4. MYLOTARG [Suspect]
     Indication: ACUTE MYELOID LEUKAEMIA
     Dosage: UNK
     Route: 042
     Dates: start: 20090126, end: 20090201
  5. CIFLOX [Suspect]
     Dosage: UNK
     Route: 042
     Dates: start: 20090220

REACTIONS (3)
  - CEREBELLAR ATAXIA [None]
  - CONFUSIONAL STATE [None]
  - OPTIC NEUROPATHY [None]
